FAERS Safety Report 11206216 (Version 3)
Quarter: 2015Q3

REPORT INFORMATION
  Report Type: Spontaneous
  Country: DE (occurrence: DE)
  Receive Date: 20150622
  Receipt Date: 20150723
  Transmission Date: 20151125
  Serious: Yes (Other)
  Sender: FDA-Public Use
  Company Number: DE-009507513-1506AUT010095

PATIENT
  Age: 20 Year
  Sex: Male

DRUGS (4)
  1. VENTOLAIR [Concomitant]
     Active Substance: BECLOMETHASONE DIPROPIONATE
     Dosage: UNK
     Dates: start: 2014
  2. AZELASTINE HYDROCHLORIDE. [Concomitant]
     Active Substance: AZELASTINE HYDROCHLORIDE
     Dosage: UNK
     Dates: start: 2014
  3. GRAZAX [Suspect]
     Active Substance: PHLEUM PRATENSE POLLEN
     Indication: SEASONAL ALLERGY
     Dosage: 75000 SQ-T; ORAL LYOPHILISATE; DAILY
     Route: 060
     Dates: start: 20150609, end: 20150609
  4. MONTELUKAST MSD 4 MG GRANULAT [Concomitant]
     Dosage: UNK
     Route: 048
     Dates: start: 2014

REACTIONS (1)
  - Throat tightness [Recovered/Resolved]

NARRATIVE: CASE EVENT DATE: 20150609
